FAERS Safety Report 7319755 (Version 3)
Quarter: 2013Q3

REPORT INFORMATION
  Report Type: Spontaneous
  Country: GB (occurrence: GB)
  Receive Date: 20100315
  Receipt Date: 20130805
  Transmission Date: 20140515
  Serious: Yes (Life-Threatening, Hospitalization)
  Sender: FDA-Public Use
  Company Number: GB-JNJFOC-20100303115

PATIENT
  Age: 15 Year
  Sex: Male
  Weight: 49 kg

DRUGS (1)
  1. CONCERTA XL [Suspect]
     Indication: ATTENTION DEFICIT/HYPERACTIVITY DISORDER
     Route: 048
     Dates: start: 20060125

REACTIONS (2)
  - Suicide attempt [Recovered/Resolved]
  - Drug dose omission [Unknown]
